FAERS Safety Report 18452142 (Version 1)
Quarter: 2020Q4

REPORT INFORMATION
  Report Type: Spontaneous
  Country: US (occurrence: US)
  Receive Date: 20201101
  Receipt Date: 20201101
  Transmission Date: 20210114
  Serious: No
  Sender: FDA-Public Use
  Company Number: None

PATIENT
  Age: 60 Year
  Sex: Female

DRUGS (1)
  1. COLGATE TOTAL SF WHITENING [Suspect]
     Active Substance: STANNOUS FLUORIDE
     Indication: DENTAL CLEANING
     Dosage: ?          OTHER ROUTE:CLEAN TEETH?
     Dates: start: 20201022, end: 20201024

REACTIONS (2)
  - Oral mucosal erythema [None]
  - Oral discomfort [None]

NARRATIVE: CASE EVENT DATE: 20201022
